FAERS Safety Report 7012821-X (Version None)
Quarter: 2010Q3

REPORT INFORMATION
  Report Type: 
  Country: None (occurrence: None)
  Receive Date: 20100924
  Receipt Date: 20100916
  Transmission Date: 20110219
  Serious: Yes (Life-Threatening)
  Sender: FDA-Public Use
  Company Number: B0674798A

PATIENT
  Sex: Female

DRUGS (11)
  1. ALKERAN [Suspect]
     Indication: MULTIPLE MYELOMA
     Route: 065
     Dates: start: 20100501
  2. THALIDOMIDE [Suspect]
     Indication: MULTIPLE MYELOMA
     Route: 048
     Dates: start: 20100301, end: 20100629
  3. ARANESP [Suspect]
     Dosage: 40MCG WEEKLY
     Route: 058
     Dates: start: 20100301, end: 20100601
  4. PREDNISONE TAB [Suspect]
     Indication: MULTIPLE MYELOMA
     Route: 065
     Dates: start: 20100501
  5. EFFEXOR [Concomitant]
     Dosage: 37.5MG PER DAY
  6. IXPRIM [Concomitant]
     Dosage: 2UNIT THREE TIMES PER DAY
  7. ACTONEL [Concomitant]
     Dosage: 35MG WEEKLY
  8. ZYLORIC [Concomitant]
     Dosage: 100MG PER DAY
  9. SODIUM BICARBONATE [Concomitant]
     Dosage: 1G THREE TIMES PER DAY
  10. SIMVASTATIN [Concomitant]
     Dosage: 20MG PER DAY
  11. ASPEGIC 1000 [Concomitant]
     Dates: end: 20100701

REACTIONS (8)
  - CEREBRAL DISORDER [None]
  - CONVULSION [None]
  - DISTURBANCE IN ATTENTION [None]
  - HEMIPARESIS [None]
  - MOTOR DYSFUNCTION [None]
  - MUTISM [None]
  - PARTIAL SEIZURES [None]
  - REVERSIBLE POSTERIOR LEUKOENCEPHALOPATHY SYNDROME [None]
